FAERS Safety Report 9291618 (Version 2)
Quarter: 2013Q2

REPORT INFORMATION
  Report Type: Spontaneous
  Country: JP (occurrence: JP)
  Receive Date: 20130515
  Receipt Date: 20130605
  Transmission Date: 20140414
  Serious: Yes (Hospitalization)
  Sender: FDA-Public Use
  Company Number: JP-009507513-1305JPN000792

PATIENT
  Age: 54 Year
  Sex: Female
  Weight: 60 kg

DRUGS (10)
  1. FOSAMAC TABLETS 35MG [Suspect]
     Indication: OSTEOPOROSIS
     Dosage: 35 MG, QW
     Route: 048
     Dates: start: 20130323, end: 20130420
  2. METHISTA [Suspect]
     Indication: BRONCHITIS CHRONIC
     Dosage: 500 MG, BID
     Route: 048
     Dates: start: 20130414, end: 20130509
  3. BAKTAR [Suspect]
     Indication: ANTIFUNGAL PROPHYLAXIS
     Dosage: 25 MG, QD
     Route: 048
     Dates: start: 20130327, end: 20130530
  4. PREDNISOLONE [Concomitant]
     Indication: INTERSTITIAL LUNG DISEASE
     Dosage: 30 MG, QD
     Route: 048
     Dates: end: 20130328
  5. PREDNISOLONE [Concomitant]
     Dosage: 27.5 MG, QD
     Route: 048
     Dates: start: 20130329, end: 20130404
  6. PREDNISOLONE [Concomitant]
     Dosage: 25 MG, QD
     Route: 048
     Dates: start: 20130405, end: 20130502
  7. PREDNISOLONE [Concomitant]
     Dosage: 20 MG, QD
     Route: 048
     Dates: start: 20130503
  8. RESPLEN [Concomitant]
     Indication: BRONCHITIS CHRONIC
     Dosage: DOSAGE UNKNOWN ON SINGLE USE, THE FIRST
     Route: 048
     Dates: start: 20130118
  9. ZOLPIDEM TARTRATE [Concomitant]
     Indication: INSOMNIA
     Dosage: DOSAGE UNKNOWN ON SINGLE USE, THE FIRST
     Route: 048
     Dates: start: 20130323
  10. SENNARIDE [Concomitant]
     Indication: CONSTIPATION
     Dosage: DOSAGE UNKNOWN ON SINGLE USE, THE FIRST
     Route: 048
     Dates: start: 20130410

REACTIONS (4)
  - C-reactive protein increased [Recovered/Resolved]
  - Pyrexia [Recovered/Resolved]
  - Rash [Recovered/Resolved]
  - Pruritus [Recovered/Resolved]
